FAERS Safety Report 23920294 (Version 1)
Quarter: 2024Q2

REPORT INFORMATION
  Report Type: Spontaneous
  Country: US (occurrence: US)
  Receive Date: 20240530
  Receipt Date: 20240530
  Transmission Date: 20240716
  Serious: Yes (Hospitalization)
  Sender: FDA-Public Use
  Company Number: US-AMGEN-HZN-2024-005852

PATIENT
  Sex: Male

DRUGS (1)
  1. RAVICTI [Suspect]
     Active Substance: GLYCEROL PHENYLBUTYRATE
     Indication: Urea cycle disorder
     Dosage: 5.5 MILLILITER, TID (1.1GM/ML; 5.5 ML BY MOUTH 3 TIMES DAILY)
     Route: 048
     Dates: start: 201707

REACTIONS (1)
  - Hospitalisation [Unknown]
